FAERS Safety Report 8257449-9 (Version None)
Quarter: 2012Q1

REPORT INFORMATION
  Report Type: 
  Country: None (occurrence: None)
  Receive Date: 20120330
  Receipt Date: 20120330
  Transmission Date: 20120608
  Serious: Yes (Other)
  Sender: FDA-Public Use
  Company Number: None

PATIENT
  Age: 85 Year
  Sex: Male
  Weight: 87.9978 kg

DRUGS (1)
  1. BICALUTAMIDE [Suspect]
     Indication: PROSTATIC SPECIFIC ANTIGEN INCREASED
     Dosage: 50MG ONCE A DAY BY MOUTH DR ORDERED FOR 3 MONTS
     Route: 048

REACTIONS (8)
  - OEDEMA PERIPHERAL [None]
  - BREAST MASS [None]
  - URINARY RETENTION [None]
  - BLOOD GLUCOSE INCREASED [None]
  - CONSTIPATION [None]
  - NIPPLE PAIN [None]
  - JOINT SWELLING [None]
  - INCONTINENCE [None]
